FAERS Safety Report 7151693-X (Version None)
Quarter: 2010Q4

REPORT INFORMATION
  Report Type: 
  Country: None (occurrence: None)
  Receive Date: 20101210
  Receipt Date: 20101206
  Transmission Date: 20110411
  Serious: Yes (Life-Threatening, Hospitalization, Disabling, Other)
  Sender: FDA-Public Use
  Company Number: DO-ABBOTT-10P-CLI-0690164-00

PATIENT
  Age: 58 Year
  Sex: Female
  Weight: 73.548 kg

DRUGS (7)
  1. HUMIRA [Suspect]
     Indication: RHEUMATOID ARTHRITIS
     Route: 058
     Dates: start: 20081112, end: 20100811
  2. METHOTREXATE [Concomitant]
     Indication: RHEUMATOID ARTHRITIS
     Route: 058
     Dates: start: 20081004, end: 20100401
  3. FOLIC ACID [Concomitant]
     Indication: RHEUMATOID ARTHRITIS
     Dates: start: 20091012
  4. FOLIC ACID [Concomitant]
     Indication: VITAMIN SUPPLEMENTATION
  5. PREDNISONE [Concomitant]
     Indication: RHEUMATOID ARTHRITIS
     Route: 048
     Dates: start: 20091012
  6. METFORMIN HCL [Concomitant]
     Indication: PRODUCT USED FOR UNKNOWN INDICATION
     Dates: start: 20080301
  7. GLYBURIDE [Concomitant]
     Indication: PRODUCT USED FOR UNKNOWN INDICATION
     Dates: start: 20100508, end: 20100608

REACTIONS (4)
  - BLOOD DISORDER [None]
  - HAEMATEMESIS [None]
  - HAEMATOCHEZIA [None]
  - MELAENA [None]
